FAERS Safety Report 11720549 (Version 1)
Quarter: 2015Q4

REPORT INFORMATION
  Report Type: Spontaneous
  Country: FR (occurrence: FR)
  Receive Date: 20151110
  Receipt Date: 20151110
  Transmission Date: 20160304
  Serious: Yes (Hospitalization)
  Sender: FDA-Public Use
  Company Number: FR-ASTRAZENECA-2015SF07745

PATIENT
  Age: 25785 Day
  Sex: Female

DRUGS (8)
  1. STAGID [Concomitant]
     Active Substance: METFORMIN PAMOATE
     Dosage: 700 MG THREE TIMES A DAY
  2. INEXIUM [Suspect]
     Active Substance: ESOMEPRAZOLE
     Route: 048
     Dates: end: 20150812
  3. TAHOR [Concomitant]
     Active Substance: ATORVASTATIN CALCIUM
     Dosage: 10 MG DAILY
  4. KERLONE [Concomitant]
     Active Substance: BETAXOLOL HYDROCHLORIDE
     Dosage: 20 MG DAILY
  5. AMLOR [Concomitant]
     Active Substance: AMLODIPINE BESYLATE
     Dosage: 10 MG DAILY
  6. SPIRONOLACTONE-ALTIZIDE [Suspect]
     Active Substance: ALTHIAZIDE\SPIRONOLACTONE
     Dosage: 25 + 15 MG 1DF DAILY
     Route: 048
     Dates: end: 20150812
  7. FUROSEMIDE. [Suspect]
     Active Substance: FUROSEMIDE
     Route: 048
     Dates: end: 20150812
  8. DOLIPRANE [Concomitant]
     Active Substance: ACETAMINOPHEN

REACTIONS (8)
  - Ecchymosis [Unknown]
  - Asthenia [Unknown]
  - Head injury [Unknown]
  - Hyponatraemia [Recovered/Resolved]
  - Haematoma [Unknown]
  - Fall [Recovered/Resolved]
  - Hypokalaemia [Recovered/Resolved]
  - Periorbital haematoma [Unknown]

NARRATIVE: CASE EVENT DATE: 20150807
